FAERS Safety Report 11112054 (Version 1)
Quarter: 2015Q2

REPORT INFORMATION
  Report Type: Spontaneous
  Country: FR (occurrence: FR)
  Receive Date: 20150514
  Receipt Date: 20150514
  Transmission Date: 20150821
  Serious: Yes (Death, Hospitalization)
  Sender: FDA-Public Use
  Company Number: FR-PFIZER INC-2015161344

PATIENT
  Age: 84 Year
  Sex: Male

DRUGS (3)
  1. KARDEGIC [Concomitant]
     Active Substance: ASPIRIN LYSINE
     Dosage: 1 DF, 1X/DAY AT NOON
  2. SUTENT [Suspect]
     Active Substance: SUNITINIB MALATE
     Dosage: 37.5 MG, UNK
     Dates: start: 20140620, end: 20140707
  3. MODOPAR [Concomitant]
     Active Substance: BENSERAZIDE HYDROCHLORIDE\LEVODOPA
     Dosage: 1 DF OF 250, IN THE MORNING AND IN THE EVENING AND 1 DF OF 125 AT NOON AND AT 4:00 PM

REACTIONS (7)
  - General physical health deterioration [Unknown]
  - Acute kidney injury [Unknown]
  - Peripheral ischaemia [Fatal]
  - Vomiting [Unknown]
  - Blood pressure decreased [Unknown]
  - Dehydration [Unknown]
  - Peripheral artery thrombosis [Unknown]

NARRATIVE: CASE EVENT DATE: 201407
